FAERS Safety Report 4354353-3 (Version None)
Quarter: 2004Q2

REPORT INFORMATION
  Report Type: 
  Country: None (occurrence: None)
  Receive Date: 20040503
  Receipt Date: 20040311
  Transmission Date: 20050107
  Serious: Yes (Other)
  Sender: FDA-Public Use
  Company Number: PHEH2004US01680

PATIENT
  Age: 84 Year
  Sex: Female

DRUGS (1)
  1. DIOVAN HCT [Suspect]
     Indication: HYPERTENSION
     Dosage: ONE TABLET DAILY, ORAL
     Route: 048
     Dates: end: 20040203

REACTIONS (4)
  - AZOTAEMIA [None]
  - BLOOD TEST ABNORMAL [None]
  - DIZZINESS [None]
  - HYPONATRAEMIA [None]
